FAERS Safety Report 23071978 (Version 1)
Quarter: 2023Q4

REPORT INFORMATION
  Report Type: Spontaneous
  Country: US (occurrence: US)
  Receive Date: 20231017
  Receipt Date: 20231017
  Transmission Date: 20240110
  Serious: Yes (Other)
  Sender: FDA-Public Use
  Company Number: US-PURDUE-USA-2020-0284016

PATIENT
  Sex: Male

DRUGS (9)
  1. OXYCODONE HYDROCHLORIDE [Suspect]
     Active Substance: OXYCODONE HYDROCHLORIDE
     Indication: Limb injury
     Dosage: UNKNOWN
     Route: 048
     Dates: start: 2002
  2. HYSINGLA ER [Suspect]
     Active Substance: HYDROCODONE BITARTRATE
     Indication: Limb injury
     Dosage: UNKNOWN
     Route: 048
     Dates: start: 2002
  3. DHC PLUS [Suspect]
     Active Substance: ACETAMINOPHEN\CAFFEINE\DIHYDROCODEINE BITARTRATE
     Indication: Limb injury
     Dosage: UNKNOWN
     Route: 048
     Dates: start: 2002
  4. HYDROMORPHONE HYDROCHLORIDE [Suspect]
     Active Substance: HYDROMORPHONE HYDROCHLORIDE
     Indication: Limb injury
     Dosage: UNKNOWN
     Route: 048
     Dates: start: 2002
  5. HYDROCODONE BITARTRATE AND ACETAMINOPHEN [Suspect]
     Active Substance: ACETAMINOPHEN\HYDROCODONE BITARTRATE
     Indication: Limb injury
     Dosage: UNKNOWN
     Route: 048
     Dates: start: 2002
  6. TRAMADOL [Suspect]
     Active Substance: TRAMADOL\TRAMADOL HYDROCHLORIDE
     Indication: Limb injury
     Dosage: UNKNOWN
     Route: 048
     Dates: start: 2002
  7. PALLADONE [Suspect]
     Active Substance: HYDROMORPHONE HYDROCHLORIDE
     Indication: Limb injury
     Dosage: UNKNOWN
     Route: 048
     Dates: start: 2002
  8. OXYCODONE [Suspect]
     Active Substance: OXYCODONE
     Indication: Limb injury
     Dosage: UNKNOWN
     Route: 048
     Dates: start: 2002
  9. MORPHINE SULFATE [Suspect]
     Active Substance: MORPHINE SULFATE
     Indication: Limb injury
     Dosage: UNKNOWN
     Route: 048
     Dates: start: 2002

REACTIONS (1)
  - Drug dependence [Unknown]
